FAERS Safety Report 21298139 (Version 1)
Quarter: 2022Q3

REPORT INFORMATION
  Report Type: Spontaneous
  Country: US (occurrence: None)
  Receive Date: 20220906
  Receipt Date: 20220906
  Transmission Date: 20221026
  Serious: Yes (Other)
  Sender: FDA-Public Use
  Company Number: 2022A307069

PATIENT
  Age: 45 Year
  Sex: Female

DRUGS (30)
  1. NEXIUM [Suspect]
     Active Substance: ESOMEPRAZOLE MAGNESIUM
     Route: 048
  2. NIRAPARIB [Suspect]
     Active Substance: NIRAPARIB
     Indication: Ovarian cancer
     Route: 048
     Dates: start: 20200718
  3. PACLITAXEL [Concomitant]
     Active Substance: PACLITAXEL
     Dates: start: 20220810
  4. PACLITAXEL [Concomitant]
     Active Substance: PACLITAXEL
     Dosage: AND CARBOPLATIN AUC 6X3 CYCLES
     Dates: start: 20191205
  5. PACLITAXEL [Concomitant]
     Active Substance: PACLITAXEL
     Dosage: 3 MORE CYCLES
     Dates: start: 20200504
  6. CARBOPLATIN [Concomitant]
     Active Substance: CARBOPLATIN
     Dates: start: 20220810
  7. CARBOPLATIN [Concomitant]
     Active Substance: CARBOPLATIN
     Dosage: AUC 6X3 CYCLES
     Dates: start: 20191205
  8. CARBOPLATIN [Concomitant]
     Active Substance: CARBOPLATIN
     Dosage: 3 MORE CYCLES
     Dates: start: 20200504
  9. AVASTIN [Concomitant]
     Active Substance: BEVACIZUMAB
     Dates: start: 20220810
  10. ABILIFY [Concomitant]
     Active Substance: ARIPIPRAZOLE
     Route: 048
  11. WELLBUTRIN XL [Concomitant]
     Active Substance: BUPROPION HYDROCHLORIDE
     Route: 048
  12. VITAMIN D3 [Concomitant]
     Active Substance: CHOLECALCIFEROL
     Route: 048
  13. CELEXA [Concomitant]
     Active Substance: CITALOPRAM HYDROBROMIDE
     Route: 048
  14. VITAMIN B12 [Concomitant]
     Active Substance: CYANOCOBALAMIN
     Route: 048
  15. ADDERALL [Concomitant]
     Active Substance: AMPHETAMINE ASPARTATE\AMPHETAMINE SULFATE\DEXTROAMPHETAMINE SACCHARATE\DEXTROAMPHETAMINE SULFATE
     Route: 048
  16. COLACE [Concomitant]
     Active Substance: DOCUSATE SODIUM
     Route: 048
  17. NEURONTIN [Concomitant]
     Active Substance: GABAPENTIN
     Route: 048
  18. CLARITIN [Concomitant]
     Active Substance: LORATADINE
     Route: 048
  19. MELATONIN [Concomitant]
     Active Substance: MELATONIN
     Route: 060
  20. MELOXICAM [Concomitant]
     Active Substance: MELOXICAM
     Dosage: 7.5MG UNKNOWN
     Route: 048
  21. VITAMINS [Concomitant]
     Active Substance: VITAMINS
     Route: 048
  22. ZYPREXA [Concomitant]
     Active Substance: OLANZAPINE
     Dosage: TAKE 1 TABLET BY MOUTH AT BEDTIME ON DAYS 1 THROUGH4 OF EACH CHEMOTHERAPY
     Route: 048
  23. ZOFRAN [Concomitant]
     Active Substance: ONDANSETRON HYDROCHLORIDE
     Indication: Nausea
     Route: 048
  24. MIRALAX [Concomitant]
     Active Substance: POLYETHYLENE GLYCOL 3350
     Dosage: 17.0GR AS REQUIRED
     Route: 048
  25. COMPAZINE [Concomitant]
     Active Substance: PROCHLORPERAZINE MALEATE
     Indication: Nausea
     Route: 048
  26. VITAMIN B6 [Concomitant]
     Active Substance: PYRIDOXINE HYDROCHLORIDE
     Route: 048
  27. GAS-X ORAL [Concomitant]
     Dosage: TAKE 2 TABLETS BY MOUNTH AS NEEDED
     Route: 048
  28. DESYREL [Concomitant]
     Active Substance: TRAZODONE HYDROCHLORIDE
     Route: 048
  29. TYLENOL [Concomitant]
     Active Substance: ACETAMINOPHEN
     Indication: Pain
  30. ELIQUIS [Concomitant]
     Active Substance: APIXABAN
     Route: 048

REACTIONS (1)
  - Ovarian cancer recurrent [Unknown]

NARRATIVE: CASE EVENT DATE: 20220715
